FAERS Safety Report 20564253 (Version 3)
Quarter: 2022Q2

REPORT INFORMATION
  Report Type: Spontaneous
  Country: PL (occurrence: None)
  Receive Date: 20220308
  Receipt Date: 20220421
  Transmission Date: 20220720
  Serious: Yes (Death)
  Sender: FDA-Public Use
  Company Number: PL-ROCHE-3038685

PATIENT
  Sex: Male
  Weight: 83 kg

DRUGS (8)
  1. COTELLIC [Suspect]
     Active Substance: COBIMETINIB
     Indication: Malignant melanoma
     Dosage: 2 TAB 1 * DAY
     Route: 048
     Dates: start: 201909, end: 202108
  2. COTELLIC [Suspect]
     Active Substance: COBIMETINIB
     Indication: Metastases to bone
  3. COTELLIC [Suspect]
     Active Substance: COBIMETINIB
     Indication: Metastases to liver
  4. COTELLIC [Suspect]
     Active Substance: COBIMETINIB
     Indication: Metastases to lung
  5. ZELBORAF [Suspect]
     Active Substance: VEMURAFENIB
     Indication: Malignant melanoma
     Dosage: 2 * 3 TABLETS
     Route: 048
     Dates: start: 201909, end: 202108
  6. FEXOFENADINE HYDROCHLORIDE [Concomitant]
     Active Substance: FEXOFENADINE HYDROCHLORIDE
     Indication: Hypersensitivity
     Route: 048
  7. SORBIFER DURULES [Concomitant]
     Indication: Anaemia
     Route: 048
  8. HEPAREGEN [Concomitant]
     Indication: Liver disorder
     Route: 048

REACTIONS (1)
  - Metastases to central nervous system [Fatal]
